FAERS Safety Report 5872799-9 (Version None)
Quarter: 2008Q3

REPORT INFORMATION
  Report Type: 
  Country: None (occurrence: None)
  Receive Date: 20080903
  Receipt Date: 20080820
  Transmission Date: 20090109
  Serious: Yes (Other)
  Sender: FDA-Public Use
  Company Number: FLCT20080167

PATIENT
  Age: 52 Year
  Sex: Female

DRUGS (4)
  1. FLECTOR [Suspect]
     Dosage: PRN, TOPICAL
     Route: 061
     Dates: start: 20080711, end: 20080801
  2. ESTRADIOL [Concomitant]
  3. DIVIGEL [Concomitant]
  4. XANAX [Concomitant]

REACTIONS (3)
  - ALANINE AMINOTRANSFERASE INCREASED [None]
  - ASPARTATE AMINOTRANSFERASE INCREASED [None]
  - PANCREATITIS ACUTE [None]
